FAERS Safety Report 5983848-1 (Version None)
Quarter: 2008Q4

REPORT INFORMATION
  Report Type: 
  Country: None (occurrence: None)
  Receive Date: 20081208
  Receipt Date: 20081203
  Transmission Date: 20090506
  Serious: Yes (Other)
  Sender: FDA-Public Use
  Company Number: RO-JNJFOC-20081201176

PATIENT
  Sex: Male
  Weight: 59 kg

DRUGS (11)
  1. TMC125 [Suspect]
     Route: 048
  2. TMC125 [Suspect]
     Indication: HIV INFECTION
     Route: 048
  3. PREZISTA [Suspect]
     Route: 048
  4. PREZISTA [Suspect]
     Indication: HIV INFECTION
     Route: 048
  5. VIREAD [Concomitant]
     Route: 048
  6. VIREAD [Concomitant]
     Indication: HIV INFECTION
     Route: 048
  7. RITONAVIR [Concomitant]
     Route: 048
  8. RITONAVIR [Concomitant]
     Indication: HIV INFECTION
     Route: 048
  9. VIDEX [Concomitant]
     Indication: HIV INFECTION
     Route: 048
  10. ZIAGEN [Concomitant]
     Indication: HIV INFECTION
     Route: 048
  11. KALETRA [Concomitant]
     Indication: HIV INFECTION
     Route: 048

REACTIONS (3)
  - DRUG HYPERSENSITIVITY [None]
  - PYREXIA [None]
  - RASH MACULO-PAPULAR [None]
